FAERS Safety Report 6543088-4 (Version None)
Quarter: 2010Q1

REPORT INFORMATION
  Report Type: 
  Country: None (occurrence: None)
  Receive Date: 20100120
  Receipt Date: 20100108
  Transmission Date: 20100710
  Serious: Yes (Other)
  Sender: FDA-Public Use
  Company Number: PHEH2008US09971

PATIENT
  Sex: Male

DRUGS (2)
  1. AREDIA [Suspect]
     Indication: MULTIPLE MYELOMA
     Dosage: 90 MG, Q 4 WEEKS X 6
     Dates: start: 20010116, end: 20020218
  2. ZOMETA [Suspect]
     Indication: MULTIPLE MYELOMA
     Dosage: 4 MG, Q 4 WEEKS X 6
     Route: 042
     Dates: start: 20020218

REACTIONS (11)
  - ANHEDONIA [None]
  - ANXIETY [None]
  - BONE LESION [None]
  - DISABILITY [None]
  - DISEASE PROGRESSION [None]
  - EXOSTOSIS [None]
  - IMPAIRED HEALING [None]
  - INJURY [None]
  - OSTEONECROSIS [None]
  - PAIN [None]
  - SECONDARY SEQUESTRUM [None]
